APPROVED DRUG PRODUCT: REGORAFENIB
Active Ingredient: REGORAFENIB
Strength: 40MG
Dosage Form/Route: TABLET;ORAL
Application: A209728 | Product #001
Applicant: ACTAVIS LABORATORIES FL INC AN INDIRECT WHOLLY OWNED SUB OF TEVA PHARMACEUTICALS USA INC
Approved: Jan 13, 2025 | RLD: No | RS: No | Type: DISCN